FAERS Safety Report 5468759-2 (Version None)
Quarter: 2007Q3

REPORT INFORMATION
  Report Type: 
  Country: None (occurrence: None)
  Receive Date: 20070926
  Receipt Date: 20070917
  Transmission Date: 20080115
  Serious: Yes (Death, Other)
  Sender: FDA-Public Use
  Company Number: US-PFIZER INC-2007031098

PATIENT
  Sex: Female
  Weight: 65.8 kg

DRUGS (3)
  1. BEXTRA [Suspect]
     Indication: ARTHRITIS
     Route: 048
     Dates: start: 20020729, end: 20030101
  2. VIOXX [Suspect]
     Indication: ARTHRITIS
     Dosage: DAILY DOSE:75MG
     Route: 048
     Dates: start: 20010502, end: 20030101
  3. VIOXX [Suspect]
     Indication: OSTEOPOROSIS

REACTIONS (2)
  - MYOCARDIAL INFARCTION [None]
  - THROMBOSIS [None]
